FAERS Safety Report 7301945-5 (Version None)
Quarter: 2011Q1

REPORT INFORMATION
  Report Type: 
  Country: None (occurrence: None)
  Receive Date: 20110218
  Receipt Date: 20110209
  Transmission Date: 20110831
  Serious: Yes (Other)
  Sender: FDA-Public Use
  Company Number: BR-ROCHE-758854

PATIENT
  Sex: Female
  Weight: 62 kg

DRUGS (6)
  1. OMEPRAZOLE [Suspect]
     Route: 048
     Dates: start: 20110101
  2. BONIVA [Suspect]
     Route: 048
     Dates: start: 20110101, end: 20110101
  3. CALCIUM [Concomitant]
  4. BONIVA [Suspect]
     Indication: OSTEOPOROSIS
     Dosage: FOR UNKNOWN INDICATION. FREQUNCY: ONCE
     Route: 048
     Dates: start: 20060101, end: 20060101
  5. VITAMIN D [Concomitant]
  6. ANTACID TAB [Suspect]
     Route: 048
     Dates: start: 20110101

REACTIONS (11)
  - HEADACHE [None]
  - CYST [None]
  - MYALGIA [None]
  - ABDOMINAL PAIN UPPER [None]
  - MUSCLE SPASMS [None]
  - MOUTH INJURY [None]
  - ABASIA [None]
  - NAUSEA [None]
  - WEIGHT DECREASED [None]
  - IMMUNE SYSTEM DISORDER [None]
  - PAIN IN EXTREMITY [None]
